FAERS Safety Report 10149933 (Version 1)
Quarter: 2014Q2

REPORT INFORMATION
  Report Type: Spontaneous
  Country: US (occurrence: US)
  Receive Date: 20140502
  Receipt Date: 20140502
  Transmission Date: 20141212
  Serious: Yes (Hospitalization)
  Sender: FDA-Public Use
  Company Number: US-ABBVIE-14P-163-1228723-00

PATIENT
  Sex: Female
  Weight: 54.48 kg

DRUGS (3)
  1. HUMIRA [Suspect]
     Indication: CROHN^S DISEASE
     Dates: start: 2013, end: 201402
  2. URSOL [Concomitant]
     Indication: CROHN^S DISEASE
  3. AZATHRINE [Concomitant]
     Indication: CROHN^S DISEASE

REACTIONS (5)
  - Cholangitis sclerosing [Not Recovered/Not Resolved]
  - Anaemia [Unknown]
  - Fatigue [Not Recovered/Not Resolved]
  - Mobility decreased [Recovered/Resolved]
  - Off label use [Recovered/Resolved]
